FAERS Safety Report 4665224-7 (Version None)
Quarter: 2005Q2

REPORT INFORMATION
  Report Type: 
  Country: None (occurrence: None)
  Receive Date: 20050517
  Receipt Date: 20050428
  Transmission Date: 20051028
  Serious: Yes (Hospitalization, Other)
  Sender: FDA-Public Use
  Company Number: USA050290411

PATIENT
  Age: 76 Year
  Sex: Female

DRUGS (1)
  1. FORTEO [Suspect]
     Indication: OSTEOPOROSIS
     Dosage: 20 UG DAY
     Dates: start: 20031101

REACTIONS (5)
  - ABASIA [None]
  - ARTHROPATHY [None]
  - ASEPTIC NECROSIS BONE [None]
  - BACK DISORDER [None]
  - PHARMACEUTICAL PRODUCT COMPLAINT [None]
